FAERS Safety Report 6860742-5 (Version None)
Quarter: 2010Q3

REPORT INFORMATION
  Report Type: 
  Country: None (occurrence: None)
  Receive Date: 20100720
  Receipt Date: 20100712
  Transmission Date: 20110219
  Serious: Yes (Hospitalization)
  Sender: FDA-Public Use
  Company Number: GXKR2010IN07690

PATIENT
  Age: 30 Year
  Sex: Female

DRUGS (1)
  1. CLOZAPINE [Suspect]
     Indication: SCHIZOPHRENIA, PARANOID TYPE
     Dosage: 400 MG, UNK

REACTIONS (7)
  - CEREBRAL VENOUS THROMBOSIS [None]
  - CONVULSION [None]
  - FATIGUE [None]
  - HEMIPARESIS [None]
  - IMPAIRED SELF-CARE [None]
  - IRRITABILITY [None]
  - VOMITING [None]
